FAERS Safety Report 18848883 (Version 1)
Quarter: 2021Q1

REPORT INFORMATION
  Report Type: Spontaneous
  Country: US (occurrence: US)
  Receive Date: 20210205
  Receipt Date: 20210205
  Transmission Date: 20210419
  Serious: Yes (Hospitalization, Other)
  Sender: FDA-Public Use
  Company Number: US-ROCHE-2750959

PATIENT
  Age: 51 Year
  Sex: Male

DRUGS (1)
  1. ALECENSA [Suspect]
     Active Substance: ALECTINIB HYDROCHLORIDE
     Indication: ANAPLASTIC LARGE-CELL LYMPHOMA
     Dosage: ONGOING: YES
     Route: 048
     Dates: start: 20191125

REACTIONS (5)
  - Intentional product use issue [Unknown]
  - Off label use [Unknown]
  - Mental disorder [Unknown]
  - Lung carcinoma cell type unspecified stage IV [Unknown]
  - Diarrhoea [Unknown]

NARRATIVE: CASE EVENT DATE: 202101
